FAERS Safety Report 24033389 (Version 1)
Quarter: 2024Q3

REPORT INFORMATION
  Report Type: Spontaneous
  Country: US (occurrence: US)
  Receive Date: 20240701
  Receipt Date: 20240701
  Transmission Date: 20241017
  Serious: No
  Sender: UCB
  Company Number: US-UCBSA-2023034132

PATIENT
  Age: 17 Year
  Sex: Male
  Weight: 95.254 kg

DRUGS (11)
  1. MIDAZOLAM [Suspect]
     Active Substance: MIDAZOLAM
     Indication: Breakthrough pain
     Dosage: 0.1 MILLIGRAM PER MILLILITRE
  2. MIDAZOLAM [Suspect]
     Active Substance: MIDAZOLAM
     Indication: Off label use
     Dosage: 6 MILLIGRAM PER HOUR
  3. KETAMINE [Concomitant]
     Active Substance: KETAMINE
     Indication: Breakthrough pain
     Dosage: 2 MILLIGRAM PER MILLILITRE
  4. KETAMINE [Concomitant]
     Active Substance: KETAMINE
     Dosage: 120 MILLIGRAM PER HOUR
  5. FENTANYL [Concomitant]
     Active Substance: FENTANYL\FENTANYL CITRATE
     Indication: Breakthrough pain
     Dosage: 5 MICROGRAM PER MILLILITRE
  6. FENTANYL [Concomitant]
     Active Substance: FENTANYL\FENTANYL CITRATE
     Dosage: 300 MILLIGRAM PER HOUR
  7. MORPHINE [Concomitant]
     Active Substance: MORPHINE
     Indication: Breakthrough pain
     Dosage: 500 MILLIGRAM PER HOUR
  8. MORPHINE [Concomitant]
     Active Substance: MORPHINE
     Dosage: 100 MILLIGRAM PER HOUR
  9. METHADONE [Concomitant]
     Active Substance: METHADONE HYDROCHLORIDE
     Indication: Product used for unknown indication
     Dosage: UNK
  10. LORAZEPAM [Concomitant]
     Active Substance: LORAZEPAM
     Indication: Product used for unknown indication
     Dosage: UNK
  11. HALOPERIDOL [Concomitant]
     Active Substance: HALOPERIDOL
     Indication: Product used for unknown indication
     Dosage: UNK

REACTIONS (1)
  - No adverse event [Unknown]
